FAERS Safety Report 25687709 (Version 2)
Quarter: 2025Q3

REPORT INFORMATION
  Report Type: Spontaneous
  Country: US (occurrence: US)
  Receive Date: 20250817
  Receipt Date: 20250919
  Transmission Date: 20251021
  Serious: No
  Sender: ELI LILLY AND COMPANY
  Company Number: US-ELI_LILLY_AND_COMPANY-US202508010490

PATIENT
  Age: 43 Year
  Sex: Female

DRUGS (15)
  1. ZEPBOUND [Suspect]
     Active Substance: TIRZEPATIDE
     Indication: Obstructive sleep apnoea syndrome
     Dosage: UNK UNK, WEEKLY (1/W)
     Route: 065
  2. ZEPBOUND [Suspect]
     Active Substance: TIRZEPATIDE
     Indication: Weight control
  3. ZEPBOUND [Suspect]
     Active Substance: TIRZEPATIDE
     Indication: Polycystic ovarian syndrome
  4. ZEPBOUND [Suspect]
     Active Substance: TIRZEPATIDE
     Indication: Sleep apnoea syndrome
     Dosage: 7.5 MG, WEEKLY (1/W)
     Route: 065
     Dates: start: 20250726
  5. ZEPBOUND [Suspect]
     Active Substance: TIRZEPATIDE
     Indication: Sleep apnoea syndrome
     Dosage: 7.5 MG, WEEKLY (1/W)
     Route: 065
     Dates: start: 20250726
  6. ZEPBOUND [Suspect]
     Active Substance: TIRZEPATIDE
     Indication: Sleep apnoea syndrome
     Dosage: 7.5 MG, WEEKLY (1/W)
     Route: 065
     Dates: start: 20250726
  7. ZEPBOUND [Suspect]
     Active Substance: TIRZEPATIDE
     Indication: Sleep apnoea syndrome
     Dosage: 7.5 MG, WEEKLY (1/W)
     Route: 065
     Dates: start: 20250726
  8. ZEPBOUND [Suspect]
     Active Substance: TIRZEPATIDE
     Indication: Weight control
  9. ZEPBOUND [Suspect]
     Active Substance: TIRZEPATIDE
     Indication: Weight control
  10. ZEPBOUND [Suspect]
     Active Substance: TIRZEPATIDE
     Indication: Weight control
  11. ZEPBOUND [Suspect]
     Active Substance: TIRZEPATIDE
     Indication: Weight control
  12. ZEPBOUND [Suspect]
     Active Substance: TIRZEPATIDE
     Indication: Polycystic ovarian syndrome
  13. ZEPBOUND [Suspect]
     Active Substance: TIRZEPATIDE
     Indication: Polycystic ovarian syndrome
  14. ZEPBOUND [Suspect]
     Active Substance: TIRZEPATIDE
     Indication: Polycystic ovarian syndrome
  15. ZEPBOUND [Suspect]
     Active Substance: TIRZEPATIDE
     Indication: Polycystic ovarian syndrome

REACTIONS (3)
  - Incorrect dose administered [Unknown]
  - Injection site pain [Unknown]
  - Injection site vesicles [Unknown]

NARRATIVE: CASE EVENT DATE: 20250809
